FAERS Safety Report 4376044-5 (Version None)
Quarter: 2004Q2

REPORT INFORMATION
  Report Type: 
  Country: None (occurrence: None)
  Receive Date: 20040611
  Receipt Date: 20040426
  Transmission Date: 20050107
  Serious: Yes (Death, Other)
  Sender: FDA-Public Use
  Company Number: US-MERCK-0405USA00267

PATIENT
  Age: 63 Year
  Sex: Female

DRUGS (15)
  1. [THERAPY UNSPECIFIED] [Concomitant]
     Route: 065
  2. ALDESLEUKIN [Concomitant]
     Route: 042
     Dates: start: 20040301
  3. ALDESLEUKIN [Concomitant]
     Route: 042
  4. ALDESLEUKIN [Concomitant]
     Route: 042
  5. ALDESLEUKIN [Concomitant]
     Route: 042
  6. EMEND [Suspect]
     Indication: PROPHYLAXIS OF NAUSEA AND VOMITING
     Route: 048
  7. EMEND [Suspect]
     Route: 048
  8. EMEND [Suspect]
     Route: 048
  9. CISPLATIN [Concomitant]
     Route: 042
     Dates: start: 20040101
  10. DACARBAZINE [Concomitant]
     Route: 042
     Dates: start: 20040301
  11. INTERFERON ALFA [Concomitant]
     Route: 051
     Dates: start: 20040301
  12. ATIVAN [Concomitant]
     Indication: NAUSEA
     Route: 065
  13. ZOFRAN [Concomitant]
     Route: 042
  14. PROTONIX [Concomitant]
     Route: 065
  15. VINBLASTINE SULFATE [Suspect]
     Route: 042
     Dates: start: 20040301

REACTIONS (7)
  - BACTERIAL SEPSIS [None]
  - DRUG INTERACTION [None]
  - DRUG LEVEL INCREASED [None]
  - INTERNATIONAL NORMALISED RATIO DECREASED [None]
  - PANCYTOPENIA [None]
  - SEPTIC SHOCK [None]
  - THERAPEUTIC RESPONSE DECREASED [None]
